FAERS Safety Report 23215812 (Version 1)
Quarter: 2023Q4

REPORT INFORMATION
  Report Type: Spontaneous
  Country: US (occurrence: US)
  Receive Date: 20231122
  Receipt Date: 20231122
  Transmission Date: 20240110
  Serious: Yes (Other)
  Sender: FDA-Public Use
  Company Number: US-AUROBINDO-AUR-APL-2023-069311

PATIENT
  Age: 59 Year
  Sex: Male

DRUGS (1)
  1. METHOTREXATE [Suspect]
     Active Substance: METHOTREXATE
     Indication: Crohn^s disease
     Dosage: 15 MILLIGRAM, EVERY WEEK (Y FOR 84 MONTHS,WITHIN 1.5 MONTHS A PARTIAL RESPONSE WAS ACHIEVED AND COMP
     Route: 065

REACTIONS (2)
  - Crohn^s disease [Unknown]
  - Rebound effect [Unknown]
